FAERS Safety Report 21260403 (Version 1)
Quarter: 2022Q3

REPORT INFORMATION
  Report Type: Spontaneous
  Country: CN (occurrence: CN)
  Receive Date: 20220826
  Receipt Date: 20220826
  Transmission Date: 20221026
  Serious: Yes (Hospitalization, Other)
  Sender: FDA-Public Use
  Company Number: None

PATIENT
  Age: 62 Year
  Sex: Female
  Weight: 70 kg

DRUGS (6)
  1. CYCLOPHOSPHAMIDE [Suspect]
     Active Substance: CYCLOPHOSPHAMIDE
     Indication: Breast cancer female
     Dosage: DOSAGE FORM- POWDER INJECTION, 1000 MG, Q14D, D1 (DILUTED WITH 0.9% SODIUM CHLORIDE 100 ML)
     Route: 041
     Dates: start: 20220810, end: 20220810
  2. SODIUM CHLORIDE [Suspect]
     Active Substance: SODIUM CHLORIDE
     Indication: Medication dilution
     Dosage: DOSAGE FORM- INJECTION, 100 ML, Q14D, D1 (DILUTED WITH CYCLOPHOSPHAMIDE 1000 MG)
     Route: 041
     Dates: start: 20220810, end: 20220810
  3. DEXTROSE MONOHYDRATE [Suspect]
     Active Substance: DEXTROSE MONOHYDRATE
     Indication: Medication dilution
     Dosage: DOSAGE FORM- INJECTION, 100 ML, Q14D, D1 (DILUTED WITH PIRARUBICIN 100 MG)
     Route: 041
     Dates: start: 20220810, end: 20220810
  4. PIRARUBICIN HYDROCHLORIDE [Suspect]
     Active Substance: PIRARUBICIN HYDROCHLORIDE
     Indication: Breast cancer female
     Dosage: 100 MG, Q14D, D1 (DILUTED WITH 5% GLUCOSE 100 ML)
     Route: 041
     Dates: start: 20220810, end: 20220810
  5. Sheng xue bao [Concomitant]
     Indication: Prophylaxis
     Dosage: (MIXTURE) 15 ML, TID
     Route: 048
     Dates: start: 20220810
  6. Sheng xue bao [Concomitant]
     Indication: Cytopenia

REACTIONS (3)
  - Myelosuppression [Recovered/Resolved]
  - White blood cell count decreased [Recovered/Resolved]
  - Neutrophil count decreased [Recovered/Resolved]

NARRATIVE: CASE EVENT DATE: 20220816
